FAERS Safety Report 24603427 (Version 1)
Quarter: 2024Q4

REPORT INFORMATION
  Report Type: Spontaneous
  Country: US (occurrence: US)
  Receive Date: 20241111
  Receipt Date: 20241111
  Transmission Date: 20250115
  Serious: Yes (Life-Threatening, Other)
  Sender: FRESENIUS KABI
  Company Number: US-FreseniusKabi-FK202416378

PATIENT
  Sex: Female

DRUGS (3)
  1. BUPIVACAINE [Suspect]
     Active Substance: BUPIVACAINE
     Indication: Product used for unknown indication
     Dosage: FORM OF ADMINISTRATION: INFUSION?A FENTANYL WITH BUPIVACAINE EPIDURAL SOLUTION WAS ADMINISTERED IV T
     Route: 042
  2. FENTANYL [Suspect]
     Active Substance: FENTANYL
     Indication: Product used for unknown indication
     Dosage: FORM OF ADMINISTRATION: INFUSION?A FENTANYL WITH BUPIVACAINE EPIDURAL SOLUTION WAS ADMINISTERED IV T
     Route: 042
  3. NALOXONE [Suspect]
     Active Substance: NALOXONE
     Indication: Reversal of opiate activity

REACTIONS (4)
  - Respiratory arrest [Recovered/Resolved]
  - Seizure [Recovered/Resolved]
  - Incorrect route of product administration [Unknown]
  - Maternal exposure during delivery [Unknown]
